FAERS Safety Report 21572263 (Version 1)
Quarter: 2022Q4

REPORT INFORMATION
  Report Type: Other
  Country: ES (occurrence: ES)
  Receive Date: 20221109
  Receipt Date: 20221109
  Transmission Date: 20230113
  Serious: Yes (Life-Threatening, Hospitalization, Other)
  Sender: FDA-Public Use
  Company Number: ES-DEXPHARM-20222130

PATIENT
  Age: 34 Year
  Sex: Female

DRUGS (3)
  1. ETHYLENE GLYCOL [Interacting]
     Active Substance: ETHYLENE GLYCOL
     Dosage: TWO GLASSES OF ETHYLENE GLYCOL
  2. VENLAFAXINE [Interacting]
     Active Substance: VENLAFAXINE HYDROCHLORIDE
     Dosage: 6000 MG VENLAFAXINE
  3. CLORAZEPATE DIPOTASSIUM [Interacting]
     Active Substance: CLORAZEPATE DIPOTASSIUM
     Dosage: CLORAZEPATE [CLORAZEPATE] 300MG

REACTIONS (6)
  - Drug interaction [Recovered/Resolved]
  - Metabolic acidosis [Recovered/Resolved]
  - Intentional overdose [Recovered/Resolved]
  - Lethargy [Recovered/Resolved]
  - Hyperventilation [Recovered/Resolved]
  - Acute kidney injury [Recovered/Resolved]
